FAERS Safety Report 6371815-8 (Version None)
Quarter: 2009Q3

REPORT INFORMATION
  Report Type: 
  Country: None (occurrence: None)
  Receive Date: 20090923
  Receipt Date: 20090915
  Transmission Date: 20100115
  Serious: Yes (Other)
  Sender: FDA-Public Use
  Company Number: US-SANOFI-SYNTHELABO-A03200903198

PATIENT
  Sex: Male

DRUGS (9)
  1. PLAVIX [Suspect]
     Indication: CEREBROVASCULAR ACCIDENT
     Route: 048
     Dates: start: 20041201, end: 20060717
  2. BLOOD PRESSURE PILL NOS [Concomitant]
     Indication: DRUG USE FOR UNKNOWN INDICATION
     Dosage: UNK
     Route: 065
     Dates: start: 20060101
  3. THEOPHYLLINE [Concomitant]
     Indication: SMOKING CESSATION THERAPY
     Dosage: ONCE A DAY OR AS NEEDED
     Route: 065
     Dates: start: 19890101, end: 20060601
  4. THEOPHYLLINE [Concomitant]
     Indication: DYSPNOEA
     Dosage: ONCE A DAY OR AS NEEDED
     Route: 065
     Dates: start: 19890101, end: 20060601
  5. THEOPHYLLINE [Concomitant]
     Indication: BRONCHITIS CHRONIC
     Dosage: ONCE A DAY OR AS NEEDED
     Route: 065
     Dates: start: 19890101, end: 20060601
  6. TENORMIN [Concomitant]
     Indication: BLOOD PRESSURE ABNORMAL
     Dosage: UNK
     Route: 048
     Dates: start: 20041201, end: 20060101
  7. FULL ASPIRIN [Concomitant]
     Indication: CEREBROVASCULAR ACCIDENT
     Route: 048
     Dates: start: 20041201
  8. SINUS TABLETS [Concomitant]
     Indication: DRUG USE FOR UNKNOWN INDICATION
     Route: 065
  9. PEPCID [Concomitant]
     Indication: ABDOMINAL DISCOMFORT
     Dosage: UNK
     Route: 065

REACTIONS (3)
  - CONFUSIONAL STATE [None]
  - DEMENTIA ALZHEIMER'S TYPE [None]
  - EPISTAXIS [None]
